FAERS Safety Report 20376101 (Version 2)
Quarter: 2023Q2

REPORT INFORMATION
  Report Type: Report from Study
  Country: TH (occurrence: TH)
  Receive Date: 20220125
  Receipt Date: 20230419
  Transmission Date: 20230721
  Serious: Yes (Death, Other)
  Sender: FDA-Public Use
  Company Number: TH-JNJFOC-20220105476

PATIENT
  Age: 68 Year
  Sex: Male

DRUGS (2)
  1. BORTEZOMIB [Suspect]
     Active Substance: BORTEZOMIB
     Indication: Plasma cell myeloma
     Dosage: 1.9 MILLIGRAM, Q2WEEKS
     Route: 058
     Dates: start: 20211122, end: 20211223
  2. DARATUMUMAB [Suspect]
     Active Substance: DARATUMUMAB
     Indication: Plasma cell myeloma
     Dosage: 800 MILLIGRAM, 1/WEEK
     Route: 041
     Dates: start: 20211122, end: 20211223

REACTIONS (2)
  - Death [Fatal]
  - Platelet count decreased [Not Recovered/Not Resolved]

NARRATIVE: CASE EVENT DATE: 20220104
